FAERS Safety Report 9355793 (Version 1)
Quarter: 2013Q2

REPORT INFORMATION
  Report Type: Spontaneous
  Country: US (occurrence: US)
  Receive Date: 20130619
  Receipt Date: 20130619
  Transmission Date: 20140414
  Serious: Yes (Hospitalization, Other)
  Sender: FDA-Public Use
  Company Number: PHHY2013US060919

PATIENT
  Age: 20 Year
  Sex: Male

DRUGS (4)
  1. GABAPENTIN [Suspect]
  2. COCAINE [Suspect]
  3. OXYCODONE HYDROCHLORIDE [Suspect]
  4. ALCOHOL [Suspect]

REACTIONS (6)
  - Coma [Unknown]
  - Somnolence [Unknown]
  - Hypotension [Unknown]
  - Myoclonus [Unknown]
  - Hyperreflexia [Unknown]
  - Drug abuse [Unknown]
